FAERS Safety Report 8198706-4 (Version None)
Quarter: 2012Q1

REPORT INFORMATION
  Report Type: 
  Country: None (occurrence: None)
  Receive Date: 20120309
  Receipt Date: 20120228
  Transmission Date: 20120608
  Serious: Yes (Other)
  Sender: FDA-Public Use
  Company Number: CA-ELI_LILLY_AND_COMPANY-CA201202008417

PATIENT
  Sex: Male

DRUGS (5)
  1. CIALIS [Suspect]
     Dosage: 20 MG, UNK
  2. ASPIRIN [Concomitant]
     Dosage: UNK, QD
  3. VITAMIN E                            /001105/ [Concomitant]
  4. ASCORBIC ACID [Concomitant]
  5. VITAMIN D [Concomitant]

REACTIONS (3)
  - GENITAL SWELLING [None]
  - NEPHRECTOMY [None]
  - DRUG INEFFECTIVE [None]
